FAERS Safety Report 4787556-4 (Version None)
Quarter: 2005Q4

REPORT INFORMATION
  Report Type: 
  Country: None (occurrence: None)
  Receive Date: 20051003
  Receipt Date: 20050916
  Transmission Date: 20060501
  Serious: Yes (Other)
  Sender: FDA-Public Use
  Company Number: 218117

PATIENT
  Age: 63 Year
  Sex: Female
  Weight: 62 kg

DRUGS (3)
  1. HERCEPTIN [Suspect]
     Dosage: SEE IMAGE
     Route: 042
     Dates: start: 20050729, end: 20050729
  2. HERCEPTIN [Suspect]
     Dosage: SEE IMAGE
     Route: 042
     Dates: start: 20050805, end: 20050805
  3. COTRIM (TRIMETHOPRIM, SULFAMETHOXAZOLE) [Concomitant]

REACTIONS (7)
  - BLOOD ALKALINE PHOSPHATASE INCREASED [None]
  - GAMMA-GLUTAMYLTRANSFERASE INCREASED [None]
  - HEADACHE [None]
  - MENINGEAL DISORDER [None]
  - NAUSEA [None]
  - PHOTOSENSITIVITY REACTION [None]
  - PYREXIA [None]
